FAERS Safety Report 5309492-7 (Version None)
Quarter: 2007Q1

REPORT INFORMATION
  Report Type: 
  Country: None (occurrence: None)
  Receive Date: 20070201
  Receipt Date: 20061120
  Transmission Date: 20070707
  Serious: No
  Sender: FDA-Public Use
  Company Number: 258895

PATIENT
  Age: 61 Year
  Sex: Female
  Weight: 72.6 kg

DRUGS (4)
  1. LEVEMIR [Suspect]
     Indication: DIABETES MELLITUS INSULIN-DEPENDENT
     Dosage: 28 IU, BID, SUBCUTANEOUS
     Route: 058
     Dates: start: 20060701
  2. HUMALOG [Concomitant]
  3. ACTOS [Concomitant]
  4. SYNTHROID [Concomitant]

REACTIONS (1)
  - INJECTION SITE URTICARIA [None]
